FAERS Safety Report 8506643-8 (Version None)
Quarter: 2012Q3

REPORT INFORMATION
  Report Type: 
  Country: None (occurrence: None)
  Receive Date: 20120712
  Receipt Date: 20120710
  Transmission Date: 20120928
  Serious: No
  Sender: FDA-Public Use
  Company Number: US-PFIZER INC-2012165600

PATIENT
  Sex: Female

DRUGS (2)
  1. OXAPROZIN [Suspect]
     Dosage: UNK
  2. OXAPROZIN [Suspect]
     Dosage: UNK

REACTIONS (2)
  - ORAL DISCOMFORT [None]
  - LIP SWELLING [None]
